FAERS Safety Report 17705900 (Version 1)
Quarter: 2020Q2

REPORT INFORMATION
  Report Type: Spontaneous
  Country: EC (occurrence: EC)
  Receive Date: 20200424
  Receipt Date: 20200424
  Transmission Date: 20200714
  Serious: Yes (Hospitalization, Other)
  Sender: FDA-Public Use
  Company Number: EC-BIOMARINAP-EC-2020-129764

PATIENT
  Age: 12 Year
  Sex: Female
  Weight: 27.9 kg

DRUGS (3)
  1. ALDURAZYME [Suspect]
     Active Substance: LARONIDASE
     Indication: MUCOPOLYSACCHARIDOSIS I
     Dosage: 5 DOSAGE FORM, QW
     Route: 042
     Dates: start: 20190911, end: 20191030
  2. ALDURAZYME [Suspect]
     Active Substance: LARONIDASE
     Dosage: UNK
     Route: 041
     Dates: start: 20191120
  3. ALDURAZYME [Suspect]
     Active Substance: LARONIDASE
     Dosage: UNK
     Route: 042
     Dates: start: 201007, end: 20200311

REACTIONS (4)
  - Dysuria [Recovering/Resolving]
  - Pharyngitis [Recovering/Resolving]
  - Influenza [Recovered/Resolved]
  - Pyelonephritis [Recovering/Resolving]

NARRATIVE: CASE EVENT DATE: 20190904
